FAERS Safety Report 7908716-7 (Version None)
Quarter: 2011Q4

REPORT INFORMATION
  Report Type: 
  Country: None (occurrence: None)
  Receive Date: 20111111
  Receipt Date: 20111027
  Transmission Date: 20120403
  Serious: Yes (Other)
  Sender: FDA-Public Use
  Company Number: PHEH2011US07937

PATIENT
  Sex: Female

DRUGS (4)
  1. IRON [Suspect]
     Route: 042
  2. VITAMIN B-12 [Suspect]
  3. SANDOSTATIN LAR [Suspect]
     Dosage: 30 MG, QMO
  4. INTERFERONS [Suspect]

REACTIONS (5)
  - ANAEMIA [None]
  - FALL [None]
  - PAIN [None]
  - DIARRHOEA [None]
  - DECREASED APPETITE [None]
